FAERS Safety Report 8849284 (Version 1)
Quarter: 2012Q4

REPORT INFORMATION
  Report Type: Spontaneous
  Country: US (occurrence: None)
  Receive Date: 20121018
  Receipt Date: 20121018
  Transmission Date: 20130627
  Serious: No
  Sender: FDA-Public Use
  Company Number: None

PATIENT
  Age: 72 Year
  Sex: Female
  Weight: 86.18 kg

DRUGS (1)
  1. FLONASE [Suspect]
     Indication: ALLERGIC RHINITIS
     Dosage: inhale 2 via nostril daily

REACTIONS (6)
  - Headache [None]
  - Malaise [None]
  - Fatigue [None]
  - Influenza like illness [None]
  - Upper-airway cough syndrome [None]
  - Sensation of pressure [None]
